FAERS Safety Report 9840931 (Version 2)
Quarter: 2014Q2

REPORT INFORMATION
  Report Type: Spontaneous
  Country: US (occurrence: None)
  Receive Date: 20131212
  Receipt Date: 20140604
  Transmission Date: 20141212
  Serious: Yes (Hospitalization)
  Sender: FDA-Public Use
  Company Number: 20120925CINRY3418

PATIENT
  Age: 48 Year
  Sex: Female

DRUGS (4)
  1. CINRYZE [Suspect]
     Indication: HEREDITARY ANGIOEDEMA
     Dosage: 1000 UNIT,1 IN 2 D
     Route: 042
     Dates: start: 20110719
  2. CINRYZE [Suspect]
     Indication: PROPHYLAXIS
     Dosage: 1000 UNIT,1 IN 2 D
     Route: 042
     Dates: start: 20110719
  3. METFORMIN (METFORMIN) [Concomitant]
  4. ATENOLOL (ATENOLOL) [Concomitant]

REACTIONS (4)
  - Hereditary angioedema [None]
  - Off label use [None]
  - Inappropriate schedule of drug administration [None]
  - Inappropriate schedule of drug administration [None]
